FAERS Safety Report 25119467 (Version 2)
Quarter: 2025Q2

REPORT INFORMATION
  Report Type: Spontaneous
  Country: US (occurrence: US)
  Receive Date: 20250325
  Receipt Date: 20250602
  Transmission Date: 20250716
  Serious: No
  Sender: Vantive US Healthcare
  Company Number: US-VANTIVE-2025VAN001372

PATIENT
  Age: 57 Year
  Sex: Male

DRUGS (2)
  1. EXTRANEAL [Suspect]
     Active Substance: CALCIUM CHLORIDE\ICODEXTRIN\MAGNESIUM CHLORIDE\SODIUM CHLORIDE\SODIUM LACTATE
     Route: 033
  2. DIANEAL FOR PERITONEAL DIALYSIS [Suspect]
     Active Substance: ANHYDROUS DEXTROSE\CALCIUM CHLORIDE\MAGNESIUM CHLORIDE\SODIUM CHLORIDE\SODIUM LACTATE
     Route: 033

REACTIONS (8)
  - Scratch [Recovered/Resolved]
  - Haemorrhage [Recovering/Resolving]
  - Scar [Recovering/Resolving]
  - Therapeutic product effect decreased [Unknown]
  - Hypertension [Not Recovered/Not Resolved]
  - Rash [Unknown]
  - Pruritus [Recovering/Resolving]
  - Disease progression [Recovering/Resolving]

NARRATIVE: CASE EVENT DATE: 20240617
